FAERS Safety Report 4639509-4 (Version None)
Quarter: 2005Q2

REPORT INFORMATION
  Report Type: 
  Country: None (occurrence: None)
  Receive Date: 20050418
  Receipt Date: 20050406
  Transmission Date: 20051028
  Serious: Yes (Other)
  Sender: FDA-Public Use
  Company Number: 2005056161

PATIENT
  Age: 45 Year
  Sex: Female
  Weight: 99 kg

DRUGS (8)
  1. LYRICA [Suspect]
     Indication: NEUROPATHIC PAIN
     Dosage: 75 MG, ORAL
     Route: 048
     Dates: start: 20050223, end: 20050226
  2. SIMVASTATIN [Concomitant]
  3. PROPRANOLOL [Concomitant]
  4. ASPIRIN [Concomitant]
  5. DIHYDROCODONE (DIHYDROCODONE) [Concomitant]
  6. ZOPICLONE (ZOPICLONE) [Concomitant]
  7. TRANSVASIN (BENZOCAINE, ETHYL NICOTINATE, HEXYL NICOTINATE, THURFYL SA [Concomitant]
  8. ORLISTAT (ORLISTAT) [Concomitant]

REACTIONS (5)
  - CONFUSIONAL STATE [None]
  - MUSCLE TWITCHING [None]
  - PARANOIA [None]
  - SUICIDAL IDEATION [None]
  - TEARFULNESS [None]
